FAERS Safety Report 24040795 (Version 1)
Quarter: 2024Q3

REPORT INFORMATION
  Report Type: Spontaneous
  Country: US (occurrence: None)
  Receive Date: 20240701
  Receipt Date: 20240701
  Transmission Date: 20241017
  Serious: No
  Sender: Public
  Company Number: None

PATIENT
  Age: 39 Year
  Sex: Female
  Weight: 96.75 kg

DRUGS (3)
  1. MONISTAT 1 COMBINATION PACK [Suspect]
     Active Substance: MICONAZOLE NITRATE
     Indication: Fungal infection
     Dosage: OTHER QUANTITY : 1 CAPSULE(S);?OTHER FREQUENCY : ONCE;?
     Route: 067
     Dates: start: 20240701, end: 20240701
  2. VITAMINS [Concomitant]
     Active Substance: VITAMINS
  3. VITAMIN D [Concomitant]
     Active Substance: VITAMIN D NOS

REACTIONS (4)
  - Burning sensation [None]
  - Swelling [None]
  - Gait inability [None]
  - Dysstasia [None]

NARRATIVE: CASE EVENT DATE: 20240701
